FAERS Safety Report 5164635-3 (Version None)
Quarter: 2006Q4

REPORT INFORMATION
  Report Type: 
  Country: None (occurrence: None)
  Receive Date: 20061205
  Receipt Date: 20061124
  Transmission Date: 20070319
  Serious: Yes (Hospitalization)
  Sender: FDA-Public Use
  Company Number: SE-AVENTIS-200622206GDDC

PATIENT
  Age: 80 Year
  Sex: Female

DRUGS (2)
  1. FLAGYL [Suspect]
     Indication: URINARY TRACT INFECTION
     Route: 048
     Dates: end: 20060809
  2. TROMBYL [Concomitant]
     Route: 048

REACTIONS (2)
  - BODY TEMPERATURE INCREASED [None]
  - VOMITING [None]
